FAERS Safety Report 10418695 (Version 1)
Quarter: 2014Q2

REPORT INFORMATION
  Report Type: Report from Study
  Country: US (occurrence: None)
  Receive Date: 20140627
  Receipt Date: 20140627
  Transmission Date: 20141212
  Serious: No
  Sender: FDA-Public Use
  Company Number: CABO-14004205

PATIENT
  Age: 72 Year
  Sex: Male

DRUGS (3)
  1. COMETRIQ (CABOZANTINIB) CAPSULE [Suspect]
     Indication: PROSTATE CANCER
     Route: 048
     Dates: start: 20140325
  2. PRINZIDE (HYDROCHLOROTHIAZIDE, LISINOPRIL DIHYDRATE) [Concomitant]
  3. VITAMINS NOS [Concomitant]

REACTIONS (6)
  - Contusion [None]
  - Haemorrhage [None]
  - Diarrhoea [None]
  - Blood calcium decreased [None]
  - Dehydration [None]
  - Off label use [None]
